FAERS Safety Report 8383189-1 (Version None)
Quarter: 2012Q2

REPORT INFORMATION
  Report Type: 
  Country: None (occurrence: None)
  Receive Date: 20120522
  Receipt Date: 20120508
  Transmission Date: 20120825
  Serious: Yes (Hospitalization)
  Sender: FDA-Public Use
  Company Number: DSU-2012-03745

PATIENT
  Sex: Female

DRUGS (4)
  1. BENICAR HCT [Suspect]
     Indication: HYPERTENSION
     Dosage: PER ORAL
     Route: 048
  2. TRIBENZOR [Suspect]
     Indication: HYPERTENSION
     Dosage: PER ORAL
     Route: 048
  3. CALCIUM CHANNEL BLOCKERS [Concomitant]
  4. ACE INHIBITOR (ACE INHIBITOR NOS) [Concomitant]

REACTIONS (2)
  - HYPOTENSION [None]
  - ADRENAL INSUFFICIENCY [None]
